FAERS Safety Report 8874622 (Version 1)
Quarter: 2012Q4

REPORT INFORMATION
  Report Type: 
  Country: US (occurrence: US)
  Receive Date: 20121031
  Receipt Date: 20121031
  Transmission Date: 20130627
  Serious: Yes (Hospitalization)
  Sender: FDA-Public Use
  Company Number: US-B.I. PHARMACEUTICALS,INC./RIDGEFIELD-2012-BP-26744BP

PATIENT
  Age: 80 Year
  Sex: Female
  Weight: 70 kg

DRUGS (18)
  1. SPIRIVA [Suspect]
     Indication: BRONCHITIS CHRONIC
     Dosage: 18 mcg
     Route: 055
  2. HYDRALAZINE [Concomitant]
     Indication: CARDIAC DISORDER
     Dosage: 40 mg
     Route: 048
     Dates: start: 201205
  3. WARFARIN [Concomitant]
     Indication: ATRIAL FIBRILLATION
     Route: 048
     Dates: start: 201201
  4. ATORVASTATIN [Concomitant]
     Indication: BLOOD CHOLESTEROL INCREASED
     Dosage: 20 mg
     Route: 048
  5. ADVAIR [Concomitant]
     Indication: ASTHMA
     Route: 055
  6. LANTUS [Concomitant]
     Indication: TYPE 2 DIABETES MELLITUS
     Dosage: 12 U
     Route: 058
     Dates: start: 201201
  7. HUMALOG [Concomitant]
     Indication: TYPE 2 DIABETES MELLITUS
     Route: 058
     Dates: start: 201201
  8. MULTIVITAMIN [Concomitant]
     Indication: SUPPLEMENTATION THERAPY
     Route: 048
  9. FUROSEMIDE [Concomitant]
     Indication: FLUID RETENTION
     Dosage: 80 mg
     Route: 048
     Dates: start: 2012
  10. ISOSORBIDE [Concomitant]
     Indication: CARDIAC DISORDER
     Dosage: 30 mg
     Route: 048
     Dates: start: 201205
  11. KLORCON [Concomitant]
     Indication: BLOOD POTASSIUM DECREASED
     Route: 048
     Dates: start: 201210
  12. CALCIUM [Concomitant]
     Indication: BLOOD CALCIUM DECREASED
     Route: 048
     Dates: start: 201205
  13. LEVOTHYROXINE [Concomitant]
     Indication: HYPOTHYROIDISM
     Dosage: 150 mcg
     Route: 048
  14. COREG [Concomitant]
     Indication: CARDIAC DISORDER
     Dosage: 12.5 mg
     Route: 048
     Dates: start: 201205
  15. PACERONE [Concomitant]
     Indication: CARDIAC DISORDER
     Dosage: 100 mg
     Route: 048
     Dates: start: 201205
  16. VITAMIN D3 [Concomitant]
     Indication: SUPPLEMENTATION THERAPY
     Dosage: 1000 U
     Route: 048
  17. ALLOPURINOL [Concomitant]
     Indication: PROPHYLAXIS
     Dosage: 100 mg
     Route: 048
     Dates: start: 201201
  18. PROTONIX [Concomitant]
     Indication: ULCER
     Dosage: 40 mg
     Route: 048
     Dates: start: 201201

REACTIONS (1)
  - Volvulus [Recovered/Resolved]
